FAERS Safety Report 5717974-9 (Version None)
Quarter: 2008Q2

REPORT INFORMATION
  Report Type: 
  Country: None (occurrence: None)
  Receive Date: 20080425
  Receipt Date: 20080417
  Transmission Date: 20081010
  Serious: Yes (Other)
  Sender: FDA-Public Use
  Company Number: A0724643A

PATIENT
  Age: 63 Year
  Sex: Male
  Weight: 74 kg

DRUGS (3)
  1. PARNATE [Suspect]
     Indication: DEPRESSION
     Dosage: 6TAB TWICE PER DAY
     Route: 048
     Dates: start: 19900101
  2. DIAZEPAM [Concomitant]
     Dates: start: 19980101
  3. LITHIUM CARBONATE [Concomitant]
     Dates: start: 19980101

REACTIONS (4)
  - AGGRESSION [None]
  - ANOREXIA [None]
  - INSOMNIA [None]
  - OVERDOSE [None]
